FAERS Safety Report 19186072 (Version 1)
Quarter: 2021Q2

REPORT INFORMATION
  Report Type: Report from Study
  Country: None (occurrence: TR)
  Receive Date: 20210427
  Receipt Date: 20210427
  Transmission Date: 20210717
  Serious: Yes (Death)
  Sender: FDA-Public Use
  Company Number: TR-ABBVIE-19S-161-2632105-00

PATIENT
  Age: 80 Year
  Sex: Male
  Weight: 75 kg

DRUGS (14)
  1. DUODOPA [Suspect]
     Active Substance: CARBIDOPA\LEVODOPA
     Dosage: MD(ML): 0.00 CD (ML): 6.50 ED(ML): 1.00
     Route: 050
  2. ATACAND [Concomitant]
     Active Substance: CANDESARTAN CILEXETIL
     Indication: HYPERTENSION
     Route: 048
     Dates: start: 2012
  3. ATOR [Concomitant]
     Active Substance: ATORVASTATIN CALCIUM
     Indication: CARDIOVASCULAR DISORDER
     Route: 048
     Dates: start: 2017
  4. MOTILIUM [Concomitant]
     Active Substance: DOMPERIDONE
     Indication: GASTROINTESTINAL DISORDER
     Route: 048
     Dates: start: 20161124
  5. DUODOPA [Suspect]
     Active Substance: CARBIDOPA\LEVODOPA
     Dosage: MD (ML): 0,00 CD (ML): 6,50 ED (ML):1,00
     Route: 050
     Dates: start: 20190404, end: 20190912
  6. BEMIKS C [Concomitant]
     Indication: VITAMIN SUPPLEMENTATION
     Dates: start: 2017
  7. DUODOPA [Suspect]
     Active Substance: CARBIDOPA\LEVODOPA
     Dosage: MD (ML): 0,00, CD  (ML): 5,80, ED (ML): 1,00
     Route: 050
     Dates: start: 20190117, end: 20190131
  8. DUODOPA [Suspect]
     Active Substance: CARBIDOPA\LEVODOPA
     Dosage: MD (ML): 0,00, CD  (ML): 6,00, ED (ML): 1,00
     Route: 050
     Dates: start: 20190131, end: 20190404
  9. D?VIT [Concomitant]
     Indication: VITAMIN SUPPLEMENTATION
     Dosage: 1X10 DROPS
     Route: 048
     Dates: start: 2017
  10. PINGEL [Concomitant]
     Active Substance: CLOPIDOGREL BISULFATE
     Indication: THROMBOSIS PROPHYLAXIS
     Route: 048
     Dates: start: 2012
  11. DUODOPA [Suspect]
     Active Substance: CARBIDOPA\LEVODOPA
     Indication: PARKINSON^S DISEASE
     Dosage: MD (ML): 0,00, CD (ML): 5,30, ED (ML): 1,00
     Route: 050
     Dates: start: 20161124, end: 20190117
  12. PHYSIOTENS [Concomitant]
     Active Substance: MOXONIDINE
     Indication: HYPERTENSION
     Route: 048
     Dates: start: 2014
  13. FOLBIOL [Concomitant]
     Active Substance: FOLIC ACID
     Indication: VITAMIN SUPPLEMENTATION
     Route: 048
     Dates: start: 2017
  14. LERCADIP [Concomitant]
     Active Substance: LERCANIDIPINE HYDROCHLORIDE
     Indication: HYPERTENSION
     Route: 048
     Dates: start: 2012

REACTIONS (2)
  - Death [Fatal]
  - Bradykinesia [Not Recovered/Not Resolved]

NARRATIVE: CASE EVENT DATE: 2019
